FAERS Safety Report 4707333-X (Version None)
Quarter: 2005Q3

REPORT INFORMATION
  Report Type: 
  Country: None (occurrence: None)
  Receive Date: 20050706
  Receipt Date: 20050624
  Transmission Date: 20060218
  Serious: Yes (Hospitalization)
  Sender: FDA-Public Use
  Company Number: GB-BRISTOL-MYERS SQUIBB COMPANY-13021258

PATIENT
  Age: 49 Year
  Sex: Female
  Weight: 110 kg

DRUGS (7)
  1. CYCLOPHOSPHAMIDE [Suspect]
     Indication: BREAST CANCER
     Route: 042
     Dates: start: 20050318, end: 20050318
  2. METHOTREXATE [Suspect]
     Indication: BREAST CANCER
     Route: 042
     Dates: start: 20050318, end: 20050318
  3. EPIRUBICIN [Suspect]
     Dates: start: 20040224, end: 20040224
  4. LANSOPRAZOLE [Concomitant]
     Indication: DEPRESSION
     Route: 048
  5. WARFARIN [Concomitant]
     Indication: CATHETER PLACEMENT
     Route: 048
     Dates: start: 20040201
  6. BECLOMETHASONE DIPROPIONATE [Concomitant]
     Indication: ASTHMA
     Route: 048
  7. CYCLIZINE [Concomitant]
     Route: 048

REACTIONS (8)
  - CHILLS [None]
  - CONFUSIONAL STATE [None]
  - LEUKOPENIA [None]
  - NAUSEA [None]
  - NEUTROPENIA [None]
  - PYREXIA [None]
  - THROMBOCYTOPENIA [None]
  - VOMITING [None]
